APPROVED DRUG PRODUCT: CHLORZOXAZONE
Active Ingredient: CHLORZOXAZONE
Strength: 250MG
Dosage Form/Route: TABLET;ORAL
Application: A089852 | Product #001
Applicant: RISING PHARMA HOLDINGS INC
Approved: May 4, 1988 | RLD: No | RS: No | Type: DISCN